FAERS Safety Report 7381456-1 (Version None)
Quarter: 2011Q1

REPORT INFORMATION
  Report Type: 
  Country: None (occurrence: None)
  Receive Date: 20110329
  Receipt Date: 20110318
  Transmission Date: 20110831
  Serious: Yes (Death)
  Sender: FDA-Public Use
  Company Number: US-PFIZER INC-2011066548

PATIENT
  Sex: Female

DRUGS (1)
  1. CORTISONE [Suspect]
     Dosage: UNK

REACTIONS (2)
  - DEATH [None]
  - DRUG INEFFECTIVE [None]
